FAERS Safety Report 10133216 (Version 2)
Quarter: 2014Q2

REPORT INFORMATION
  Report Type: Spontaneous
  Country: BR (occurrence: BR)
  Receive Date: 20140428
  Receipt Date: 20140508
  Transmission Date: 20141212
  Serious: Yes (Hospitalization, Other)
  Sender: FDA-Public Use
  Company Number: BR-SA-2014SA049819

PATIENT
  Age: 35 Year
  Sex: Female

DRUGS (1)
  1. CLEXANE [Suspect]
     Indication: THROMBOSIS
     Dosage: DOSAGE: 2 INJECTIONS OF UNSPECIFIED DOSE DAILY
     Route: 065
     Dates: end: 201311

REACTIONS (5)
  - Premature separation of placenta [Unknown]
  - Exposure during pregnancy [Unknown]
  - Urinary tract infection [Unknown]
  - Premature delivery [Unknown]
  - Haemorrhage [Recovered/Resolved]
